FAERS Safety Report 5792665-7 (Version None)
Quarter: 2008Q2

REPORT INFORMATION
  Report Type: 
  Country: None (occurrence: None)
  Receive Date: 20080624
  Receipt Date: 20080609
  Transmission Date: 20081010
  Serious: Yes (Hospitalization, Other)
  Sender: FDA-Public Use
  Company Number: 2008001266

PATIENT
  Age: 73 Year
  Sex: Female

DRUGS (7)
  1. ERLOTINIB (ERLOTINIB)(TABLET) ERLOTINIB) [Suspect]
     Indication: LUNG ADENOCARCINOMA
     Dosage: (150 MG,QD), ORAL
     Route: 048
     Dates: start: 20080317, end: 20080417
  2. FAMOTIDINE [Concomitant]
  3. URSO (URSODEOXYCHOLORIC ACID) [Concomitant]
  4. VITAMEDIN [Concomitant]
  5. CINAL (CINAL) [Concomitant]
  6. LENDORM [Concomitant]
  7. MAGNESIUM OXIDE (MAGNESIUM OXIDE) [Concomitant]

REACTIONS (5)
  - DERMATITIS ACNEIFORM [None]
  - HEPATIC FUNCTION ABNORMAL [None]
  - PARONYCHIA [None]
  - SEBORRHOEIC DERMATITIS [None]
  - VOMITING [None]
